FAERS Safety Report 6640883-8 (Version None)
Quarter: 2010Q1

REPORT INFORMATION
  Report Type: 
  Country: None (occurrence: None)
  Receive Date: 20100318
  Receipt Date: 20100304
  Transmission Date: 20100710
  Serious: Yes (Hospitalization)
  Sender: FDA-Public Use
  Company Number: IT-ELI_LILLY_AND_COMPANY-IT201003001528

PATIENT
  Age: 46 Year
  Sex: Male

DRUGS (1)
  1. CIALIS [Suspect]
     Dosage: 10 MG, AS NEEDED
     Route: 048
     Dates: start: 20090101, end: 20091201

REACTIONS (3)
  - BLINDNESS [None]
  - HEADACHE [None]
  - VASCULITIS [None]
